FAERS Safety Report 6123788-0 (Version None)
Quarter: 2009Q1

REPORT INFORMATION
  Report Type: 
  Country: None (occurrence: None)
  Receive Date: 20090319
  Receipt Date: 20090306
  Transmission Date: 20090719
  Serious: Yes (Hospitalization)
  Sender: FDA-Public Use
  Company Number: US-ROCHE-620330

PATIENT
  Age: 29 Year
  Sex: Female

DRUGS (9)
  1. RIBAVIRIN [Suspect]
     Indication: HEPATITIS C
     Route: 048
     Dates: start: 20081001, end: 20090101
  2. RIBAVIRIN [Suspect]
     Route: 048
     Dates: start: 20090101, end: 20090201
  3. PEG-INTERFERON A-2A (RO 25-8310) [Suspect]
     Indication: HEPATITIS C
     Route: 058
     Dates: start: 20081001, end: 20090201
  4. NEXIUM [Concomitant]
  5. BUSPAR [Concomitant]
     Indication: ANXIETY
  6. CYMBALTA [Concomitant]
     Indication: DEPRESSION
  7. ABILIFY [Concomitant]
     Indication: SCHIZOPHRENIA
  8. AMBIEN [Concomitant]
     Indication: INSOMNIA
  9. ADDERALL 10 [Concomitant]

REACTIONS (3)
  - ABDOMINAL PAIN UPPER [None]
  - KIDNEY INFECTION [None]
  - NEPHROLITHIASIS [None]
